FAERS Safety Report 8200251-4 (Version None)
Quarter: 2012Q1

REPORT INFORMATION
  Report Type: 
  Country: None (occurrence: None)
  Receive Date: 20120309
  Receipt Date: 20120309
  Transmission Date: 20120608
  Serious: No
  Sender: FDA-Public Use
  Company Number: None

PATIENT
  Sex: Male
  Weight: 78.4723 kg

DRUGS (3)
  1. PHENYTOIN SODIUM [Suspect]
     Indication: EPILEPSY
     Dosage: 100 MG EXT CAP. 3 - B/F BED -} 300MG TOTAL
  2. PHENYTOIN SODIUM [Suspect]
     Indication: CONVULSION
     Dosage: 100 MG EXT CAP. 3 - B/F BED -} 300MG TOTAL
  3. PHENYTOIN SODIUM [Suspect]
     Indication: BRAIN INJURY
     Dosage: 100 MG EXT CAP. 3 - B/F BED -} 300MG TOTAL

REACTIONS (2)
  - DRY MOUTH [None]
  - POLLAKIURIA [None]
